FAERS Safety Report 25250412 (Version 2)
Quarter: 2025Q4

REPORT INFORMATION
  Report Type: Spontaneous
  Country: EU (occurrence: EU)
  Receive Date: 20250429
  Receipt Date: 20251112
  Transmission Date: 20260118
  Serious: Yes (Life-Threatening, Hospitalization)
  Sender: BAYER HEALTHCARE PHARMACEUTICALS INC.
  Company Number: EU-Nycomed-0200761

PATIENT
  Age: 62 Year
  Sex: Male

DRUGS (11)
  1. CIPROFLOXACIN [Suspect]
     Active Substance: CIPROFLOXACIN
     Indication: Pyrexia
     Dosage: 400 MG, BID
     Dates: start: 20080430, end: 20080503
  2. PANTOPRAZOLE [Suspect]
     Active Substance: PANTOPRAZOLE
     Indication: Abdominal pain
     Dosage: 40 MG, QD
     Route: 048
     Dates: start: 20080428, end: 20080507
  3. PANTOPRAZOLE [Suspect]
     Active Substance: PANTOPRAZOLE
     Indication: Abdominal pain
     Dosage: 40 MG, QD
     Route: 048
     Dates: start: 20080527, end: 20080530
  4. LANSOPRAZOLE [Suspect]
     Active Substance: LANSOPRAZOLE
     Indication: Gastric ulcer
     Dosage: 30 MG, BID
     Route: 048
     Dates: start: 20080507, end: 20080523
  5. MEROPENEM [Suspect]
     Active Substance: MEROPENEM
     Indication: Pyrexia
     Dosage: 1000 MILLIGRAM(S)
     Route: 042
     Dates: start: 20080511, end: 20080516
  6. FLUCONAZOLE [Suspect]
     Active Substance: FLUCONAZOLE
     Indication: Pyrexia
     Dosage: 200 MG, QD
     Dates: start: 20080429, end: 20080519
  7. B-Combin [Concomitant]
     Indication: Hypovitaminosis
     Dosage: 1 DF, TID
     Route: 065
     Dates: start: 20080508
  8. THIAMINE [Concomitant]
     Active Substance: THIAMINE
     Indication: Hypovitaminosis
     Dosage: 300 MG, QD
     Route: 048
     Dates: start: 20080428
  9. ZINACEF [Concomitant]
     Active Substance: CEFUROXIME SODIUM
     Indication: Pyrexia
     Dosage: 1500 MG, TID
     Route: 030
     Dates: start: 20080428, end: 20080430
  10. ZINACEF [Concomitant]
     Active Substance: CEFUROXIME SODIUM
     Indication: Pyrexia
     Dosage: 750 MG, TID
     Route: 030
     Dates: start: 20080430, end: 20080510
  11. CEFUROXIME [Concomitant]
     Active Substance: CEFUROXIME
     Indication: Pyrexia
     Dosage: 2250 MG, QD
     Route: 030
     Dates: start: 20080430, end: 20080510

REACTIONS (8)
  - Toxic epidermal necrolysis [Recovered/Resolved]
  - Pain in extremity [Recovered/Resolved]
  - Paraesthesia [Recovered/Resolved]
  - Tremor [Recovered/Resolved]
  - Rash [Recovered/Resolved]
  - Rash maculo-papular [Unknown]
  - Asthenia [Unknown]
  - Oedema peripheral [Unknown]

NARRATIVE: CASE EVENT DATE: 20080525
